FAERS Safety Report 19968125 (Version 1)
Quarter: 2021Q4

REPORT INFORMATION
  Report Type: Spontaneous
  Country: US (occurrence: US)
  Receive Date: 20211015
  Receipt Date: 20211015
  Transmission Date: 20220304
  Serious: Yes (Hospitalization)
  Sender: FDA-Public Use
  Company Number: None

PATIENT
  Age: 72 Year
  Sex: Male

DRUGS (1)
  1. EPCLUSA [Suspect]
     Active Substance: SOFOSBUVIR\VELPATASVIR
     Indication: Chronic hepatitis C
     Dosage: OTHER DOSE:400-100 MG;
     Route: 048
     Dates: start: 20210921

REACTIONS (4)
  - Chest pain [None]
  - Arteriosclerosis [None]
  - Pulmonary oedema [None]
  - Therapy interrupted [None]

NARRATIVE: CASE EVENT DATE: 20211006
